FAERS Safety Report 5032500-8 (Version None)
Quarter: 2006Q2

REPORT INFORMATION
  Report Type: 
  Country: None (occurrence: None)
  Receive Date: 20060622
  Receipt Date: 20060223
  Transmission Date: 20061013
  Serious: Yes (Other)
  Sender: FDA-Public Use
  Company Number: DE-AVENTIS-200610538DE

PATIENT
  Age: 27 Year
  Sex: Female

DRUGS (8)
  1. APIDRA [Suspect]
     Indication: DIABETES MELLITUS INSULIN-DEPENDENT
     Dosage: DOSE: NOT REPORTED
     Route: 058
     Dates: start: 20041201
  2. LANTUS [Suspect]
     Indication: DIABETES MELLITUS INSULIN-DEPENDENT
     Route: 058
     Dates: start: 20041110, end: 20060510
  3. MIRANOVA [Suspect]
     Indication: CONTRACEPTION
     Route: 048
     Dates: start: 20041214, end: 20060101
  4. IBEROGAST [Concomitant]
     Dosage: DOSE: NOT REPORTED
     Route: 048
  5. BRONCHOFORTON [Concomitant]
     Dosage: DOSE: NOT REPORTED
     Route: 048
  6. BRONCHICUM NATTERMAN ELIXIR [Concomitant]
     Dosage: DOSE: NOT REPORTED
     Route: 048
  7. CETEBE [Concomitant]
     Dosage: DOSE: NOT REPORTED
     Route: 048
  8. MEDITONSIN [Concomitant]
     Dosage: DOSE: NOT REPORTED
     Route: 048

REACTIONS (2)
  - FOCAL NODULAR HYPERPLASIA [None]
  - GAMMA-GLUTAMYLTRANSFERASE INCREASED [None]
